FAERS Safety Report 23183583 (Version 8)
Quarter: 2025Q1

REPORT INFORMATION
  Report Type: Spontaneous
  Country: US (occurrence: US)
  Receive Date: 20231114
  Receipt Date: 20250327
  Transmission Date: 20250409
  Serious: Yes (Hospitalization, Other)
  Sender: PFIZER
  Company Number: US-PFIZER INC-PV202300182102

PATIENT
  Age: 72 Year
  Sex: Female
  Weight: 49.433 kg

DRUGS (12)
  1. XELJANZ [Suspect]
     Active Substance: TOFACITINIB CITRATE
     Indication: Rheumatoid arthritis
     Dosage: 5 MG, 2X/DAY (1AM, 1PM)
     Dates: start: 2014
  2. XELJANZ [Suspect]
     Active Substance: TOFACITINIB CITRATE
     Dosage: 5 MG, 2X/DAY
     Route: 048
     Dates: start: 20190108
  3. XELJANZ [Suspect]
     Active Substance: TOFACITINIB CITRATE
     Route: 048
  4. METHOTREXATE [Concomitant]
     Active Substance: METHOTREXATE
     Indication: Rheumatoid arthritis
     Dosage: 15 MG, WEEKLY
     Route: 048
     Dates: start: 2008
  5. METHOTREXATE [Concomitant]
     Active Substance: METHOTREXATE
     Dosage: 0.6 ML, WEEKLY
     Route: 048
     Dates: start: 2009
  6. DULOXETINE [Concomitant]
     Active Substance: DULOXETINE
     Indication: Rheumatoid arthritis
     Dosage: 60 MG, DAILY (1AM)
     Dates: start: 2008
  7. FOLIC ACID [Concomitant]
     Active Substance: FOLIC ACID
     Indication: Rheumatoid arthritis
     Dosage: 6 MG, DAILY
     Dates: start: 2009
  8. VITAMIN D3 [Concomitant]
     Active Substance: CHOLECALCIFEROL
     Dosage: 1000 IU, DAILY
     Dates: start: 2009
  9. CLONAZEPAM [Concomitant]
     Active Substance: CLONAZEPAM
     Indication: Anxiety
     Dosage: 2 MG, 2X/DAY (AM, PM)
     Dates: start: 2008
  10. CLONAZEPAM [Concomitant]
     Active Substance: CLONAZEPAM
     Dosage: UNK UNK, 3X/DAY
     Route: 048
  11. CYMBALTA [Concomitant]
     Active Substance: DULOXETINE HYDROCHLORIDE
     Indication: Fibromyalgia
  12. GABAPENTIN [Concomitant]
     Active Substance: GABAPENTIN
     Indication: Fibromyalgia
     Dosage: TID PM
     Route: 048

REACTIONS (3)
  - Vision blurred [Recovered/Resolved]
  - Glaucoma [Recovered/Resolved]
  - Pain [Recovered/Resolved]

NARRATIVE: CASE EVENT DATE: 20231102
